FAERS Safety Report 4307494-0 (Version None)
Quarter: 2004Q1

REPORT INFORMATION
  Report Type: 
  Country: None (occurrence: None)
  Receive Date: 20040226
  Receipt Date: 20040216
  Transmission Date: 20041129
  Serious: No
  Sender: FDA-Public Use
  Company Number: 04P-167-0250889-00

PATIENT
  Age: 50 Year
  Sex: Female

DRUGS (2)
  1. ERYMAX [Suspect]
     Indication: CELLULITIS
     Dosage: 250 MG, 4 IN 1 D, PER ORAL
     Route: 048
     Dates: start: 20020311, end: 20020314
  2. PARACETAMOL [Concomitant]

REACTIONS (5)
  - CAPILLARY DISORDER [None]
  - MUSCULOSKELETAL STIFFNESS [None]
  - OEDEMA PERIPHERAL [None]
  - PERIPHERAL VASCULAR DISORDER [None]
  - SKIN DISCOLOURATION [None]
